FAERS Safety Report 8435481-X (Version None)
Quarter: 2012Q2

REPORT INFORMATION
  Report Type: 
  Country: None (occurrence: None)
  Receive Date: 20120614
  Receipt Date: 20120606
  Transmission Date: 20120825
  Serious: Yes (Hospitalization)
  Sender: FDA-Public Use
  Company Number: US-BAYER-2012-019943

PATIENT
  Age: 35 Year
  Sex: Female
  Weight: 81 kg

DRUGS (19)
  1. PRISTIQ [Concomitant]
     Indication: DEPRESSION
     Dosage: UNK
     Dates: start: 20091109
  2. PHENTERMINE [Concomitant]
     Dosage: UNK
     Dates: start: 20100111
  3. CYCLOBENZAPRINE [Concomitant]
     Indication: MUSCLE SPASMS
     Dosage: 10 MG, TID
     Route: 048
     Dates: start: 20100113
  4. HYDROCHLOROTHIAZIDE [Concomitant]
     Dosage: UNK
     Dates: start: 20100111
  5. PRISTIQ [Concomitant]
     Dosage: UNK
     Dates: start: 20091214
  6. PRISTIQ [Concomitant]
     Dosage: UNK
     Route: 048
     Dates: start: 20090101
  7. YAZ [Suspect]
     Indication: ACNE
     Dosage: UNK
     Dates: start: 20070101, end: 20080801
  8. THYROID THERAPY [Concomitant]
     Dosage: 65 MG 1 TABLET AFTER BREAKFAST
     Route: 048
     Dates: start: 20091113
  9. PRISTIQ [Concomitant]
     Dosage: UNK
     Dates: start: 20100111
  10. AMOXICILLIN [Concomitant]
     Indication: ACNE
     Dosage: 250 MG ONE CAPSULE TWICE DAILY
     Route: 048
     Dates: start: 20091102
  11. HYDROCHLOROTHIAZIDE [Concomitant]
     Dosage: 25MG 1 TABLET AFTER BREAKFAST
     Route: 048
     Dates: start: 20091113
  12. THYROID TAB [Concomitant]
     Dosage: 60MG ONE TABLET AFTER BREAKFAST
     Route: 048
     Dates: start: 20091212
  13. PHENTERMINE [Concomitant]
     Dosage: UNK
     Dates: start: 20091212
  14. RANITIDINE HCL [Concomitant]
     Dosage: 150MG 1-2 TIMES A DAY
     Route: 048
     Dates: start: 20100115
  15. PRISTIQ [Concomitant]
     Indication: ANXIETY
     Dosage: 50 MG, 1 TABLET DAILY
     Route: 048
     Dates: start: 20090101
  16. PHENTERMINE [Concomitant]
     Dosage: 30MG ONE CAPSULE AFTER BREAKFAST
     Route: 048
     Dates: start: 20091113
  17. PRILOSEC [Concomitant]
     Dosage: 40 MG, QD
     Route: 048
     Dates: start: 20100115
  18. HYDROCHLOROTHIAZIDE [Concomitant]
     Dosage: UNK
     Dates: start: 20091212
  19. TRAMADOL HCL [Concomitant]
     Indication: PAIN
     Dosage: 50 MG, QID
     Route: 048
     Dates: start: 20100115

REACTIONS (4)
  - PAIN [None]
  - INJURY [None]
  - GALLBLADDER DISORDER [None]
  - CHOLECYSTITIS ACUTE [None]
